FAERS Safety Report 11388749 (Version 2)
Quarter: 2015Q3

REPORT INFORMATION
  Report Type: Spontaneous
  Country: US (occurrence: US)
  Receive Date: 20150817
  Receipt Date: 20150917
  Transmission Date: 20151125
  Serious: Yes (Hospitalization, Other)
  Sender: FDA-Public Use
  Company Number: US-BMSGILMSD-2015-0166968

PATIENT
  Age: 60 Year
  Sex: Female
  Weight: 57.6 kg

DRUGS (4)
  1. HARVONI [Interacting]
     Active Substance: LEDIPASVIR\SOFOSBUVIR
     Indication: HEPATITIS C
     Dosage: UNK
     Route: 065
     Dates: start: 20150611
  2. HCTZ [Concomitant]
     Active Substance: HYDROCHLOROTHIAZIDE
  3. IBUPROFEN. [Concomitant]
     Active Substance: IBUPROFEN
  4. ATRIPLA [Suspect]
     Active Substance: EFAVIRENZ\EMTRICITABINE\TENOFOVIR DISOPROXIL FUMARATE
     Indication: HIV INFECTION
     Dosage: UNK
     Route: 065
     Dates: start: 2009

REACTIONS (9)
  - Fall [Unknown]
  - Acidosis [Unknown]
  - Drug interaction [Unknown]
  - Drug level increased [Unknown]
  - Electrocardiogram abnormal [Unknown]
  - Myocardial ischaemia [Recovering/Resolving]
  - Dizziness [Unknown]
  - Blood creatinine increased [Recovering/Resolving]
  - Tubulointerstitial nephritis [Unknown]

NARRATIVE: CASE EVENT DATE: 20150812
